FAERS Safety Report 6480392-2 (Version None)
Quarter: 2009Q4

REPORT INFORMATION
  Report Type: 
  Country: None (occurrence: None)
  Receive Date: 20091201
  Receipt Date: 20091117
  Transmission Date: 20100525
  Serious: Yes (Other)
  Sender: FDA-Public Use
  Company Number: WAES 0909USA04476

PATIENT
  Age: 68 Year
  Sex: Female
  Weight: 78.9259 kg

DRUGS (8)
  1. CAP VORINOSTAT UNK [Suspect]
     Indication: ACUTE MYELOID LEUKAEMIA
     Dosage: 400 MG/DAILY/PO
     Route: 048
     Dates: start: 20090824, end: 20090906
  2. CAP VORINOSTAT UNK [Suspect]
     Indication: MYELODYSPLASTIC SYNDROME
     Dosage: 400 MG/DAILY/PO
     Route: 048
     Dates: start: 20090824, end: 20090906
  3. CAP VORINOSTAT UNK [Suspect]
     Indication: ACUTE MYELOID LEUKAEMIA
     Dosage: 400 MG/DAILY/PO
     Route: 048
     Dates: start: 20090914, end: 20090924
  4. CAP VORINOSTAT UNK [Suspect]
     Indication: MYELODYSPLASTIC SYNDROME
     Dosage: 400 MG/DAILY/PO
     Route: 048
     Dates: start: 20090914, end: 20090924
  5. VELCADE [Suspect]
     Indication: ACUTE MYELOID LEUKAEMIA
     Dosage: 2.4 MG/Q4D/IV
     Route: 042
     Dates: start: 20090824, end: 20090903
  6. VELCADE [Suspect]
     Indication: MYELODYSPLASTIC SYNDROME
     Dosage: 2.4 MG/Q4D/IV
     Route: 042
     Dates: start: 20090824, end: 20090903
  7. VELCADE [Suspect]
     Indication: ACUTE MYELOID LEUKAEMIA
     Dosage: 2.4 MG/Q4D/IV
     Route: 042
     Dates: start: 20090914, end: 20090924
  8. VELCADE [Suspect]
     Indication: MYELODYSPLASTIC SYNDROME
     Dosage: 2.4 MG/Q4D/IV
     Route: 042
     Dates: start: 20090914, end: 20090924

REACTIONS (11)
  - DEHYDRATION [None]
  - DIARRHOEA [None]
  - ECCHYMOSIS [None]
  - ELECTROCARDIOGRAM QT PROLONGED [None]
  - FALL [None]
  - HEAD INJURY [None]
  - HYPOPHAGIA [None]
  - INFECTION [None]
  - MEMORY IMPAIRMENT [None]
  - NAUSEA [None]
  - SYNCOPE [None]
